FAERS Safety Report 21646684 (Version 1)
Quarter: 2022Q4

REPORT INFORMATION
  Report Type: Spontaneous
  Country: CN (occurrence: CN)
  Receive Date: 20221127
  Receipt Date: 20221127
  Transmission Date: 20230113
  Serious: Yes (Hospitalization, Other)
  Sender: FDA-Public Use
  Company Number: CN-TEVA-2022-CN-2829039

PATIENT
  Age: 29 Year
  Sex: Male

DRUGS (20)
  1. CYCLOSPORINE [Suspect]
     Active Substance: CYCLOSPORINE
     Indication: Immunosuppressant drug therapy
     Route: 065
     Dates: start: 201912
  2. CYTARABINE [Suspect]
     Active Substance: CYTARABINE
     Indication: Acute myeloid leukaemia
     Dosage: TWO CONSOLIDATION REGIMENS WITH HIGH DOSE
     Route: 065
     Dates: start: 2019
  3. CYTARABINE [Suspect]
     Active Substance: CYTARABINE
     Indication: Bone marrow conditioning regimen
  4. BUSULFAN [Suspect]
     Active Substance: BUSULFAN
     Indication: Bone marrow conditioning regimen
     Route: 065
     Dates: start: 201912
  5. CYTARABINE [Suspect]
     Active Substance: CYTARABINE
     Indication: Bone marrow conditioning regimen
     Route: 065
     Dates: start: 201912
  6. SEMUSTINE [Suspect]
     Active Substance: SEMUSTINE
     Indication: Bone marrow conditioning regimen
     Route: 065
     Dates: start: 201912
  7. LAPINE T-LYMPHOCYTE IMMUNE GLOBULIN [Suspect]
     Active Substance: LAPINE T-LYMPHOCYTE IMMUNE GLOBULIN
     Indication: Bone marrow conditioning regimen
     Route: 065
     Dates: start: 201912
  8. PREDNISONE [Suspect]
     Active Substance: PREDNISONE
     Indication: Immunosuppressant drug therapy
     Route: 065
  9. DOXORUBICIN HYDROCHLORIDE [Suspect]
     Active Substance: DOXORUBICIN HYDROCHLORIDE
     Indication: Kaposi^s sarcoma
     Dosage: FOR ONLY 3 TIMES, 20 MG ONCE IN 3 WEEKS
     Route: 065
  10. ALITRETINOIN [Suspect]
     Active Substance: ALITRETINOIN
     Indication: Kaposi^s sarcoma
     Route: 061
  11. IMIQUIMOD [Suspect]
     Active Substance: IMIQUIMOD
     Indication: Kaposi^s sarcoma
     Route: 061
  12. THALIDOMIDE [Suspect]
     Active Substance: THALIDOMIDE
     Indication: Kaposi^s sarcoma
     Dosage: 75 MG
     Route: 065
  13. CYCLOPHOSPHAMIDE [Suspect]
     Active Substance: CYCLOPHOSPHAMIDE
     Indication: Bone marrow conditioning regimen
     Route: 065
     Dates: start: 201912
  14. FOSCARNET SODIUM [Concomitant]
     Active Substance: FOSCARNET SODIUM
     Indication: Kaposi^s sarcoma
     Route: 065
  15. GANCICLOVIR [Concomitant]
     Active Substance: GANCICLOVIR
     Indication: Epstein-Barr virus infection
     Route: 065
  16. GANCICLOVIR [Concomitant]
     Active Substance: GANCICLOVIR
     Indication: Cytomegalovirus infection
  17. GANCICLOVIR [Concomitant]
     Active Substance: GANCICLOVIR
     Indication: Herpes virus infection
  18. GANCICLOVIR [Concomitant]
     Active Substance: GANCICLOVIR
     Indication: Human herpesvirus 8 infection
  19. VORICONAZOLE [Concomitant]
     Active Substance: VORICONAZOLE
     Indication: Antifungal prophylaxis
     Route: 065
  20. SULFAMETHOXAZOLE [Concomitant]
     Active Substance: SULFAMETHOXAZOLE
     Indication: Prophylaxis
     Route: 065

REACTIONS (18)
  - Epstein-Barr virus infection [Unknown]
  - Cytomegalovirus infection [Unknown]
  - Herpes simplex [Unknown]
  - Human herpesvirus 8 infection [Recovered/Resolved]
  - BK virus infection [Unknown]
  - Kaposi^s sarcoma [Recovered/Resolved]
  - Stomatitis [Recovered/Resolved]
  - Cachexia [Recovered/Resolved]
  - Dysphagia [Recovered/Resolved]
  - Tachypnoea [Recovered/Resolved]
  - Hypoproteinaemia [Recovered/Resolved]
  - Bone marrow failure [Recovered/Resolved]
  - Cystitis haemorrhagic [Recovered/Resolved]
  - Pollakiuria [Unknown]
  - Haematuria [Unknown]
  - Pneumonia [Unknown]
  - Hypoxia [Unknown]
  - Sepsis [Unknown]
